FAERS Safety Report 23060494 (Version 1)
Quarter: 2023Q4

REPORT INFORMATION
  Report Type: Spontaneous
  Country: US (occurrence: US)
  Receive Date: 20231012
  Receipt Date: 20231012
  Transmission Date: 20240110
  Serious: No
  Sender: FDA-Public Use
  Company Number: US-BAYER-2023A142940

PATIENT
  Age: 88 Year
  Sex: Female

DRUGS (1)
  1. MIRALAX [Suspect]
     Active Substance: POLYETHYLENE GLYCOL 3350
     Indication: Abdominal discomfort
     Dosage: ONCE A DAY
     Route: 048

REACTIONS (2)
  - Incorrect product administration duration [Unknown]
  - Drug ineffective [None]
